FAERS Safety Report 8056403-X (Version None)
Quarter: 2011Q4

REPORT INFORMATION
  Report Type: 
  Country: None (occurrence: None)
  Receive Date: 20111220
  Receipt Date: 20111006
  Transmission Date: 20120403
  Serious: Yes (Hospitalization)
  Sender: FDA-Public Use
  Company Number: PHEH2011US06543

PATIENT
  Age: 66 Year
  Sex: Female

DRUGS (3)
  1. LEVOTHYROXINE SODIUM [Concomitant]
  2. MYFORTIC [Suspect]
     Indication: PROPHYLAXIS AGAINST TRANSPLANT REJECTION
     Dosage: 1440 MG; ORAL, 720 MG, DAILY, ORAL
     Route: 048
     Dates: start: 20110225
  3. MYFORTIC [Suspect]
     Indication: PROPHYLAXIS AGAINST TRANSPLANT REJECTION
     Dosage: 1440 MG; ORAL, 720 MG, DAILY, ORAL
     Route: 048
     Dates: start: 20090113

REACTIONS (4)
  - CHEST PAIN [None]
  - OEDEMA [None]
  - MEMORY IMPAIRMENT [None]
  - FATIGUE [None]
